FAERS Safety Report 21081178 (Version 1)
Quarter: 2022Q3

REPORT INFORMATION
  Report Type: Spontaneous
  Country: US (occurrence: None)
  Receive Date: 20220713
  Receipt Date: 20220713
  Transmission Date: 20221026
  Serious: Yes (Hospitalization)
  Sender: FDA-Public Use
  Company Number: None

PATIENT
  Age: 67 Year
  Sex: Female

DRUGS (1)
  1. HUMIRA [Suspect]
     Active Substance: ADALIMUMAB
     Indication: Rheumatoid arthritis
     Route: 058
     Dates: start: 201801

REACTIONS (5)
  - Therapy cessation [None]
  - Adverse event [None]
  - Cholecystectomy [None]
  - COVID-19 [None]
  - Sepsis [None]

NARRATIVE: CASE EVENT DATE: 20190101
